FAERS Safety Report 8062394-8 (Version None)
Quarter: 2012Q1

REPORT INFORMATION
  Report Type: 
  Country: None (occurrence: None)
  Receive Date: 20120113
  Receipt Date: 20120103
  Transmission Date: 20120608
  Serious: Yes (Hospitalization, Other)
  Sender: FDA-Public Use
  Company Number: 2012P1000473

PATIENT
  Age: 66 Year
  Sex: Male

DRUGS (1)
  1. PHENOBARBITAL (NO PREF. NAME) [Suspect]
     Indication: INTENTIONAL DRUG MISUSE
     Dosage: 6 G;X1;PO
     Route: 048

REACTIONS (12)
  - COMA SCALE ABNORMAL [None]
  - AREFLEXIA [None]
  - HYPERTENSION [None]
  - HYPOPHOSPHATAEMIA [None]
  - TOXICITY TO VARIOUS AGENTS [None]
  - HYPOTHERMIA [None]
  - BLOOD LACTIC ACID INCREASED [None]
  - HYPOMAGNESAEMIA [None]
  - THROMBOCYTOPENIA [None]
  - MIOSIS [None]
  - HYPOTENSION [None]
  - HYPOCALCAEMIA [None]
